FAERS Safety Report 7681577-X (Version None)
Quarter: 2011Q3

REPORT INFORMATION
  Report Type: 
  Country: None (occurrence: None)
  Receive Date: 20110812
  Receipt Date: 20110802
  Transmission Date: 20111222
  Serious: Yes (Hospitalization, Other)
  Sender: FDA-Public Use
  Company Number: PHHY2011FR68357

PATIENT
  Age: 64 Year
  Sex: Female

DRUGS (15)
  1. CORDARONE [Concomitant]
     Dosage: 200 MG, UNK
  2. CIPROFLOXACIN [Concomitant]
     Dosage: UNK UKN, UNK
  3. PREDNISONE [Concomitant]
     Dosage: 1 MG, UNK
  4. GELOFUSINE [Concomitant]
     Dosage: UNK UKN, UNK
  5. PIPERACILLIN AND TAZOBACTAM [Concomitant]
     Dosage: UNK UKN, UNK
  6. VANCOMYCIN [Concomitant]
     Dosage: UNK UKN, UNK
  7. NOREPINEPHRINE BITARTRATE [Concomitant]
     Dosage: UNK UKN, UNK
  8. MYFORTIC [Suspect]
     Dosage: 360 MG 2DF 3 TIMES PER DAY
     Dates: start: 20110311
  9. MYFORTIC [Suspect]
     Dosage: 360 MG 2DF TWICE A DAY
  10. PANTOPRAZOLE SODIUM [Concomitant]
     Dosage: 40 MG, UNK
  11. BACTRIM [Concomitant]
     Dosage: UNK UKN, UNK
  12. NEORAL [Concomitant]
     Dosage: UNK UKN, UNK
  13. CALCIUM CARBONATE [Concomitant]
     Dosage: 1.54 G, UNK
  14. FOLINORAL [Concomitant]
     Dosage: 25 MG, UNK
  15. ACETAMINOPHEN [Concomitant]
     Dosage: UNK UKN, UNK

REACTIONS (10)
  - SHOCK HAEMORRHAGIC [None]
  - THROMBOCYTOPENIA [None]
  - HAEMATOTOXICITY [None]
  - SEPTIC SHOCK [None]
  - HYPOTENSION [None]
  - LEUKOPENIA [None]
  - CEREBRAL HAEMORRHAGE [None]
  - NEUTROPENIA [None]
  - ACUTE ABDOMEN [None]
  - PYREXIA [None]
